FAERS Safety Report 4605167-8 (Version None)
Quarter: 2005Q1

REPORT INFORMATION
  Report Type: 
  Country: None (occurrence: None)
  Receive Date: 20050217
  Receipt Date: 20041109
  Transmission Date: 20050727
  Serious: No
  Sender: FDA-Public Use
  Company Number: S04-USA-07430-01

PATIENT
  Age: 52 Year
  Sex: Male

DRUGS (15)
  1. NAMENDA [Suspect]
     Indication: AMNESIA
     Dosage: 15 MG QD PO
     Route: 048
     Dates: start: 20041107
  2. NAMENDA [Suspect]
     Indication: AMNESIA
     Dosage: 5 MG QD PO
     Route: 048
     Dates: start: 20041024, end: 20041030
  3. NAMENDA [Suspect]
     Indication: AMNESIA
     Dosage: 10 MG QD PO
     Route: 048
     Dates: start: 20041031, end: 20041106
  4. NEURONTIN [Concomitant]
  5. CARDIZEM [Concomitant]
  6. FLEXERIL [Concomitant]
  7. WELLBUTRIN [Concomitant]
  8. EFFEXOR XR [Concomitant]
  9. TIGAN [Concomitant]
  10. RESTORIL [Concomitant]
  11. ATIVAN [Concomitant]
  12. MIDRIN [Concomitant]
  13. DARVOCET [Concomitant]
  14. FLONASE (FLUTICASON PROPIONATE) [Concomitant]
  15. TESSALON [Concomitant]

REACTIONS (2)
  - MUSCLE SPASMS [None]
  - MYALGIA [None]
